FAERS Safety Report 7763180-6 (Version None)
Quarter: 2011Q3

REPORT INFORMATION
  Report Type: 
  Country: None (occurrence: None)
  Receive Date: 20110920
  Receipt Date: 20110913
  Transmission Date: 20111222
  Serious: Yes (Other)
  Sender: FDA-Public Use
  Company Number: PHHY2011ES81870

PATIENT
  Age: 36 Year
  Sex: Female

DRUGS (1)
  1. INTERFERON BETA-1B [Suspect]
     Dosage: 220 DF, QOD WITH PROGRESSIVE INCREASE OF THE DOSE
     Route: 058
     Dates: start: 20101101

REACTIONS (5)
  - COELIAC DISEASE [None]
  - NAUSEA [None]
  - DYSPEPSIA [None]
  - DIARRHOEA [None]
  - ABDOMINAL PAIN [None]
